FAERS Safety Report 4338280-3 (Version None)
Quarter: 2004Q2

REPORT INFORMATION
  Report Type: 
  Country: None (occurrence: None)
  Receive Date: 20040409
  Receipt Date: 20040315
  Transmission Date: 20050107
  Serious: Yes (Hospitalization)
  Sender: FDA-Public Use
  Company Number: F01200400528

PATIENT
  Age: 56 Year
  Sex: Male

DRUGS (2)
  1. (OXALIPLATIN) - SOLUTION - 130 MG/M2 [Suspect]
     Indication: COLON CANCER
     Dosage: 130 MG/M2 Q3W, INTRAVENOUS
     Route: 042
     Dates: start: 20040225, end: 20040225
  2. (CAPECITABINE) - TABLET - 1000 MG/M2 [Suspect]
     Dosage: 1000 MG/M2 TWICE A DAY PER ORAL FROM D1 TO D15, ORAL
     Route: 048
     Dates: start: 20040225, end: 20040225

REACTIONS (1)
  - VENA CAVA THROMBOSIS [None]
